FAERS Safety Report 6138657-X (Version None)
Quarter: 2009Q1

REPORT INFORMATION
  Report Type: 
  Country: None (occurrence: None)
  Receive Date: 20090331
  Receipt Date: 20090319
  Transmission Date: 20090719
  Serious: Yes (Other)
  Sender: FDA-Public Use
  Company Number: PHHY2009GT10304

PATIENT
  Age: 46 Year
  Sex: Female

DRUGS (2)
  1. DIOVAN [Suspect]
     Indication: HYPERTENSION
     Dosage: 160 MG PER DAY
     Route: 048
  2. FUROSEMIDE [Concomitant]
     Dosage: 40 MG PER DAY
     Route: 048

REACTIONS (2)
  - CYSTOCELE [None]
  - URINARY INCONTINENCE [None]
